FAERS Safety Report 24462869 (Version 1)
Quarter: 2024Q4

REPORT INFORMATION
  Report Type: Spontaneous
  Country: JP (occurrence: JP)
  Receive Date: 20241018
  Receipt Date: 20241018
  Transmission Date: 20250115
  Serious: Yes (Life-Threatening, Hospitalization)
  Sender: MYLAN
  Company Number: JP-MYE-2024M1093519AA

PATIENT
  Age: 83 Year
  Sex: Female

DRUGS (2)
  1. MAGNESIUM OXIDE [Suspect]
     Active Substance: MAGNESIUM OXIDE
     Indication: Constipation
     Dosage: 660 MILLIGRAM, QD
     Route: 065
  2. LITHIUM CARBONATE [Suspect]
     Active Substance: LITHIUM CARBONATE
     Indication: Bipolar disorder
     Dosage: 300 MILLIGRAM, QD
     Route: 065

REACTIONS (5)
  - Renal impairment [Unknown]
  - Sinus node dysfunction [Unknown]
  - Acute kidney injury [Unknown]
  - Hypermagnesaemia [Recovering/Resolving]
  - Bradycardia [Unknown]
